FAERS Safety Report 14559781 (Version 1)
Quarter: 2018Q1

REPORT INFORMATION
  Report Type: Spontaneous
  Country: US (occurrence: US)
  Receive Date: 20180220
  Receipt Date: 20180220
  Transmission Date: 20180509
  Serious: Yes (Hospitalization, Other)
  Sender: FDA-Public Use
  Company Number: None

PATIENT
  Age: 43 Year
  Sex: Male
  Weight: 70.65 kg

DRUGS (1)
  1. PRIALT [Suspect]
     Active Substance: ZICONOTIDE ACETATE

REACTIONS (4)
  - Paranoia [None]
  - Therapy change [None]
  - Hallucination, visual [None]
  - Hallucination, auditory [None]

NARRATIVE: CASE EVENT DATE: 20180129
